FAERS Safety Report 5028012-8 (Version None)
Quarter: 2006Q2

REPORT INFORMATION
  Report Type: 
  Country: None (occurrence: None)
  Receive Date: 20060612
  Receipt Date: 20060531
  Transmission Date: 20061013
  Serious: Yes (Other)
  Sender: FDA-Public Use
  Company Number: ESP06000070

PATIENT
  Age: 66 Year
  Sex: Female

DRUGS (1)
  1. ACREL(RISEDRONATE SODIUM 35 MG) TABLET, 35MG [Suspect]
     Indication: OSTEOPOROSIS
     Dosage: 35 MG, UNK, UNKNOWN
     Route: 065

REACTIONS (3)
  - HYPERSENSITIVITY [None]
  - ORAL FUNGAL INFECTION [None]
  - RENAL DISORDER [None]
